FAERS Safety Report 19040074 (Version 1)
Quarter: 2021Q1

REPORT INFORMATION
  Report Type: Spontaneous
  Country: DE (occurrence: DE)
  Receive Date: 20210323
  Receipt Date: 20210323
  Transmission Date: 20210420
  Serious: Yes (Hospitalization)
  Sender: FDA-Public Use
  Company Number: DE-TEVA-2021-DE-1892081

PATIENT
  Age: 28 Month
  Sex: Male

DRUGS (1)
  1. LEVETIRACETAM 100MG/ML [Suspect]
     Active Substance: LEVETIRACETAM
     Indication: EPILEPSY
     Dosage: DAILY DOSE: 3.2 ML MILLILITRE(S) EVERY DAYS 2 SEPARATED DOSES, 3.2ML
     Route: 048
     Dates: start: 201910

REACTIONS (2)
  - Febrile convulsion [Unknown]
  - Status epilepticus [Unknown]

NARRATIVE: CASE EVENT DATE: 20200621
